FAERS Safety Report 19980423 (Version 3)
Quarter: 2021Q4

REPORT INFORMATION
  Report Type: Report from Study
  Country: CA (occurrence: CA)
  Receive Date: 20211021
  Receipt Date: 20211206
  Transmission Date: 20220303
  Serious: Yes (Hospitalization, Other)
  Sender: FDA-Public Use
  Company Number: CA-SA-SAC20211017000006

PATIENT
  Age: 53 Year
  Sex: Female

DRUGS (8)
  1. TERIFLUNOMIDE [Suspect]
     Active Substance: TERIFLUNOMIDE
     Indication: Relapsing-remitting multiple sclerosis
     Dosage: 14 MG, QD
     Route: 048
     Dates: start: 20191023
  2. GABAPENTIN [Concomitant]
     Active Substance: GABAPENTIN
     Dosage: 2400 MG, QD
  3. VITAMIN D NOS [Concomitant]
     Active Substance: VITAMIN D NOS
     Dosage: 1000 IU, QD
  4. MYRBETRIQ [Concomitant]
     Active Substance: MIRABEGRON
     Dosage: UNK, Q12H
  5. NAPROXEN [Concomitant]
     Active Substance: NAPROXEN
     Dosage: UNK, BID
  6. AMITRIPTYLINE [Concomitant]
     Active Substance: AMITRIPTYLINE
     Dosage: UNK, QD
  7. VITAMINS NOS [Concomitant]
     Active Substance: VITAMINS
  8. ZENHALE [Concomitant]
     Active Substance: FORMOTEROL FUMARATE\MOMETASONE FUROATE
     Route: 065

REACTIONS (5)
  - Respiratory failure [Recovered/Resolved]
  - Respiratory tract infection viral [Recovered/Resolved]
  - H1N1 influenza [Recovered/Resolved]
  - Tandem gait test abnormal [Unknown]
  - Sensory loss [Unknown]

NARRATIVE: CASE EVENT DATE: 20191101
